FAERS Safety Report 10290656 (Version 2)
Quarter: 2014Q3

REPORT INFORMATION
  Report Type: Spontaneous
  Country: US (occurrence: US)
  Receive Date: 20140710
  Receipt Date: 20140827
  Transmission Date: 20150326
  Serious: Yes (Other)
  Sender: FDA-Public Use
  Company Number: US-ELI_LILLY_AND_COMPANY-US201407000870

PATIENT
  Sex: Female

DRUGS (8)
  1. HUMALOG [Suspect]
     Active Substance: INSULIN LISPRO
     Indication: TYPE 2 DIABETES MELLITUS
  2. GABAPENTIN. [Concomitant]
     Active Substance: GABAPENTIN
     Indication: NEUROPATHY PERIPHERAL
  3. INSULIN HUMAN [Suspect]
     Active Substance: INSULIN HUMAN
     Indication: TYPE 2 DIABETES MELLITUS
     Route: 065
  4. HUMULIN 70/30 [Suspect]
     Active Substance: INSULIN HUMAN
     Dosage: 20 U, BID
     Route: 065
     Dates: start: 2007
  5. HUMULIN N [Suspect]
     Active Substance: INSULIN HUMAN
     Indication: TYPE 2 DIABETES MELLITUS
     Route: 065
  6. LANTUS [Concomitant]
     Active Substance: INSULIN GLARGINE
  7. HUMULIN 70/30 [Suspect]
     Active Substance: INSULIN HUMAN
     Indication: TYPE 2 DIABETES MELLITUS
     Dosage: UNK
     Route: 065
     Dates: start: 2005
  8. TIZANIDINE [Concomitant]
     Active Substance: TIZANIDINE

REACTIONS (12)
  - Blood glucose increased [Unknown]
  - Head injury [Unknown]
  - Blood glucose increased [Unknown]
  - Underdose [Unknown]
  - Blood glucose decreased [Unknown]
  - Incorrect dose administered [Recovered/Resolved]
  - Injection site pain [Unknown]
  - Road traffic accident [Unknown]
  - Neck injury [Unknown]
  - Hunger [Unknown]
  - Somnolence [Unknown]
  - Amnesia [Unknown]

NARRATIVE: CASE EVENT DATE: 2007
